FAERS Safety Report 19392421 (Version 2)
Quarter: 2021Q3

REPORT INFORMATION
  Report Type: Report from Study
  Country: CO (occurrence: CO)
  Receive Date: 20210608
  Receipt Date: 20210903
  Transmission Date: 20211014
  Serious: Yes (Other)
  Sender: FDA-Public Use
  Company Number: CO-JNJFOC-20210453351

PATIENT
  Age: 49 Year
  Sex: Female
  Weight: 57 kg

DRUGS (2)
  1. SIMPONI [Suspect]
     Active Substance: GOLIMUMAB
     Indication: RHEUMATOID ARTHRITIS
     Route: 058
     Dates: start: 20190508
  2. SIMPONI [Suspect]
     Active Substance: GOLIMUMAB
     Dosage: THE LAST ADMINISTRATION DATE WAS ON 26?DEC?2020
     Route: 058
     Dates: start: 20200220

REACTIONS (2)
  - Rheumatoid arthritis [Not Recovered/Not Resolved]
  - COVID-19 [Recovering/Resolving]

NARRATIVE: CASE EVENT DATE: 2021
